FAERS Safety Report 16313966 (Version 3)
Quarter: 2019Q2

REPORT INFORMATION
  Report Type: Report from Study
  Country: US (occurrence: US)
  Receive Date: 20190515
  Receipt Date: 20190618
  Transmission Date: 20190711
  Serious: Yes (Hospitalization, Other)
  Sender: FDA-Public Use
  Company Number: US-PFIZER INC-2019191075

PATIENT
  Age: 69 Year
  Sex: Female

DRUGS (2)
  1. ANASTRAZOLE DENK [Suspect]
     Active Substance: ANASTROZOLE
     Dosage: UNK, DAILY
     Route: 048
  2. IBRANCE [Suspect]
     Active Substance: PALBOCICLIB
     Indication: BREAST CANCER FEMALE
     Dosage: 100 MG, CYCLIC (21 DAYS ON AND 7 DAYS OFF)
     Route: 048
     Dates: start: 20190409

REACTIONS (7)
  - Clostridium difficile infection [Unknown]
  - Pyrexia [Unknown]
  - Fatigue [Unknown]
  - Bone marrow failure [Unknown]
  - Asthenia [Unknown]
  - Decreased appetite [Unknown]
  - Alopecia [Unknown]

NARRATIVE: CASE EVENT DATE: 20190514
